FAERS Safety Report 15999513 (Version 1)
Quarter: 2019Q1

REPORT INFORMATION
  Report Type: Spontaneous
  Country: US (occurrence: US)
  Receive Date: 20190222
  Receipt Date: 20190222
  Transmission Date: 20190418
  Serious: Yes (Hospitalization, Disabling)
  Sender: FDA-Public Use
  Company Number: None

PATIENT
  Age: 38 Year
  Sex: Female
  Weight: 65.25 kg

DRUGS (1)
  1. LUPRON [Suspect]
     Active Substance: LEUPROLIDE ACETATE
     Indication: UTERINE LEIOMYOMA
     Dosage: ?          OTHER FREQUENCY:WAS ONCE A MONTH.;?
     Route: 030
     Dates: start: 20140929, end: 20141229

REACTIONS (7)
  - Bone disorder [None]
  - Musculoskeletal disorder [None]
  - Blepharospasm [None]
  - Loose tooth [None]
  - Spondylitis [None]
  - Movement disorder [None]
  - Pain in extremity [None]

NARRATIVE: CASE EVENT DATE: 20140929
